FAERS Safety Report 25981505 (Version 1)
Quarter: 2025Q4

REPORT INFORMATION
  Report Type: Spontaneous
  Country: EU (occurrence: EU)
  Receive Date: 20251030
  Receipt Date: 20251030
  Transmission Date: 20260117
  Serious: Yes (Death)
  Sender: EMD SERONO INC
  Company Number: EU-Merck Healthcare KGaA-2025054818

PATIENT
  Age: 77 Year
  Sex: Male

DRUGS (2)
  1. TEPMETKO [Suspect]
     Active Substance: TEPOTINIB HYDROCHLORIDE
     Indication: Non-small cell lung cancer metastatic
     Dates: start: 202307, end: 202404
  2. OSIMERTINIB [Concomitant]
     Active Substance: OSIMERTINIB
     Indication: Non-small cell lung cancer metastatic

REACTIONS (2)
  - Death [Fatal]
  - Off label use [Unknown]

NARRATIVE: CASE EVENT DATE: 20241001
